FAERS Safety Report 19698132 (Version 2)
Quarter: 2021Q3

REPORT INFORMATION
  Report Type: Spontaneous
  Country: US (occurrence: US)
  Receive Date: 20210813
  Receipt Date: 20210830
  Transmission Date: 20211014
  Serious: Yes (Other)
  Sender: FDA-Public Use
  Company Number: US-ASTRAZENECA-2021A656344

PATIENT
  Age: 25097 Day
  Sex: Female
  Weight: 61.2 kg

DRUGS (9)
  1. SYMBICORT [Suspect]
     Active Substance: BUDESONIDE\FORMOTEROL FUMARATE DIHYDRATE
     Indication: LOWER RESPIRATORY TRACT INFECTION
     Dosage: 160/4.5, 80/4.5
     Route: 055
     Dates: start: 20151103, end: 20190513
  2. SYMBICORT [Suspect]
     Active Substance: BUDESONIDE\FORMOTEROL FUMARATE DIHYDRATE
     Indication: CHRONIC OBSTRUCTIVE PULMONARY DISEASE
     Dosage: 2 DOSAGE FORM, TWO TIMES DAILY
     Route: 055
     Dates: start: 20151112, end: 20190512
  3. SYMBICORT [Suspect]
     Active Substance: BUDESONIDE\FORMOTEROL FUMARATE DIHYDRATE
     Indication: LOWER RESPIRATORY TRACT INFECTION
     Dosage: 2 DOSAGE FORM, TWO TIMES DAILY
     Route: 055
     Dates: start: 20151112, end: 20190512
  4. SYMBICORT [Suspect]
     Active Substance: BUDESONIDE\FORMOTEROL FUMARATE DIHYDRATE
     Indication: CHRONIC OBSTRUCTIVE PULMONARY DISEASE
     Dosage: 160/4.5, 80/4.5
     Route: 055
     Dates: start: 20151103, end: 20190513
  5. FLONASE [Concomitant]
     Active Substance: FLUTICASONE PROPIONATE
  6. SYMBICORT [Suspect]
     Active Substance: BUDESONIDE\FORMOTEROL FUMARATE DIHYDRATE
     Indication: ASTHMA
     Dosage: 2 DOSAGE FORM, TWO TIMES DAILY
     Route: 055
     Dates: start: 20151112, end: 20190512
  7. SYMBICORT [Suspect]
     Active Substance: BUDESONIDE\FORMOTEROL FUMARATE DIHYDRATE
     Indication: ASTHMA
     Dosage: 160/4.5, 80/4.5
     Route: 055
     Dates: start: 20151103, end: 20190513
  8. ZYRTEC [Concomitant]
     Active Substance: CETIRIZINE HYDROCHLORIDE
  9. ADVIL [Concomitant]
     Active Substance: IBUPROFEN

REACTIONS (24)
  - Intestinal haemorrhage [Recovered/Resolved]
  - Skin exfoliation [Recovered/Resolved]
  - Abdominal distension [Unknown]
  - Gait disturbance [Unknown]
  - Osteoporosis [Not Recovered/Not Resolved]
  - Dyspnoea [Recovered/Resolved]
  - Dysstasia [Unknown]
  - Body height decreased [Recovered/Resolved]
  - Neuropathy peripheral [Not Recovered/Not Resolved]
  - Muscle spasms [Recovered/Resolved]
  - Muscle spasms [Unknown]
  - Muscle atrophy [Recovered/Resolved]
  - Asthenia [Recovered/Resolved]
  - Diarrhoea [Recovered/Resolved]
  - Anxiety [Recovered/Resolved]
  - Rectal haemorrhage [Recovered/Resolved]
  - Skin haemorrhage [Recovered/Resolved]
  - Constipation [Recovered/Resolved]
  - Haematochezia [Recovered/Resolved]
  - Balance disorder [Recovered/Resolved]
  - Back pain [Unknown]
  - Weight increased [Recovered/Resolved]
  - Tendon rupture [Recovered/Resolved]
  - Vaginal haemorrhage [Recovered/Resolved]

NARRATIVE: CASE EVENT DATE: 20151120
